FAERS Safety Report 13772277 (Version 1)
Quarter: 2017Q3

REPORT INFORMATION
  Report Type: Spontaneous
  Country: GB (occurrence: GB)
  Receive Date: 20170720
  Receipt Date: 20170720
  Transmission Date: 20171127
  Serious: Yes (Hospitalization)
  Sender: FDA-Public Use
  Company Number: GB-JNJFOC-20170714082

PATIENT
  Age: 79 Year
  Sex: Female

DRUGS (8)
  1. XARELTO [Suspect]
     Active Substance: RIVAROXABAN
     Indication: ATRIAL FIBRILLATION
     Route: 048
  2. OMEPRAZOLE. [Concomitant]
     Active Substance: OMEPRAZOLE
     Route: 065
  3. SERTRALINE [Concomitant]
     Active Substance: SERTRALINE HYDROCHLORIDE
     Route: 065
  4. ATORVASTATIN [Concomitant]
     Active Substance: ATORVASTATIN
     Route: 065
  5. LISINOPRIL. [Concomitant]
     Active Substance: LISINOPRIL
     Route: 065
  6. FERROUS FUMARATE [Concomitant]
     Active Substance: FERROUS FUMARATE
     Route: 065
  7. BISOPROLOL FUMARATE. [Concomitant]
     Active Substance: BISOPROLOL FUMARATE
     Route: 065
  8. TOLTERODINE [Concomitant]
     Active Substance: TOLTERODINE
     Route: 065

REACTIONS (3)
  - Rectal haemorrhage [Recovered/Resolved]
  - Epistaxis [Recovered/Resolved]
  - Faeces discoloured [Recovered/Resolved]

NARRATIVE: CASE EVENT DATE: 20170625
